FAERS Safety Report 20430792 (Version 1)
Quarter: 2022Q1

REPORT INFORMATION
  Report Type: Report from Study
  Country: US (occurrence: US)
  Receive Date: 20220204
  Receipt Date: 20220204
  Transmission Date: 20220423
  Serious: Yes (Life-Threatening, Hospitalization)
  Sender: FDA-Public Use
  Company Number: US-SERVIER-S21005836

PATIENT

DRUGS (7)
  1. PEGASPARGASE [Suspect]
     Active Substance: PEGASPARGASE
     Indication: Acute lymphocytic leukaemia
     Dosage: 2500 IU/M2, ONE DOSE
     Route: 042
     Dates: start: 20210513, end: 20210513
  2. DEXAMETHASONE [Suspect]
     Active Substance: DEXAMETHASONE
     Indication: Acute lymphocytic leukaemia
     Dosage: 3 MG/M2, QD
     Route: 065
     Dates: start: 20210501, end: 20210526
  3. VINCRISTINE SULFATE [Suspect]
     Active Substance: VINCRISTINE SULFATE
     Indication: Acute lymphocytic leukaemia
     Dosage: 1.5 MG/M2, EVERY 1 WEEK
     Route: 042
     Dates: start: 20210510, end: 20210524
  4. DOXORUBICIN HYDROCHLORIDE [Suspect]
     Active Substance: DOXORUBICIN HYDROCHLORIDE
     Indication: Acute lymphocytic leukaemia
     Dosage: 30 MG/M2, QD
     Route: 042
     Dates: start: 20210510, end: 20210511
  5. DEXRAZOXANE [Suspect]
     Active Substance: DEXRAZOXANE
     Indication: Acute lymphocytic leukaemia
     Dosage: 300 MG/M2, QD
     Route: 042
     Dates: start: 20210510, end: 20210511
  6. CYTARABINE [Suspect]
     Active Substance: CYTARABINE
     Indication: Acute lymphocytic leukaemia
     Dosage: 40 MG, EVERY 3 WEEKS
     Route: 037
     Dates: start: 20210505, end: 20210525
  7. HYDROCORTISONE [Suspect]
     Active Substance: HYDROCORTISONE
     Indication: Acute lymphocytic leukaemia
     Dosage: 15 MG, ONE DOSE
     Route: 037
     Dates: start: 20210525, end: 20210525

REACTIONS (2)
  - Pneumonia [Not Recovered/Not Resolved]
  - Bacteraemia [Not Recovered/Not Resolved]

NARRATIVE: CASE EVENT DATE: 20210525
